FAERS Safety Report 17324674 (Version 1)
Quarter: 2020Q1

REPORT INFORMATION
  Report Type: Spontaneous
  Country: US (occurrence: US)
  Receive Date: 20200109
  Receipt Date: 20200109
  Transmission Date: 20200409
  Serious: Yes (Life-Threatening)
  Sender: FDA-Public Use
  Company Number: None

PATIENT
  Age: 74 Year
  Sex: Male

DRUGS (2)
  1. IOHEXOL (IOHEXOL 388.3MG/ML INJ) [Suspect]
     Active Substance: IOHEXOL
     Indication: CONTRAST MEDIA DEPOSITION
     Route: 042
     Dates: start: 20191222, end: 20191222
  2. ONDANSETRON (ONDANSETRO N HCL 4MG/ML INJ SOLN) [Suspect]
     Active Substance: ONDANSETRON HYDROCHLORIDE
     Indication: NAUSEA
     Route: 042
     Dates: start: 20191223, end: 20191223

REACTIONS (3)
  - Dyspnoea [None]
  - Urticaria [None]
  - Chest pain [None]

NARRATIVE: CASE EVENT DATE: 20191223
